FAERS Safety Report 23232322 (Version 1)
Quarter: 2023Q4

REPORT INFORMATION
  Report Type: Spontaneous
  Country: ES (occurrence: ES)
  Receive Date: 20231127
  Receipt Date: 20231127
  Transmission Date: 20240110
  Serious: Yes (Other)
  Sender: FDA-Public Use
  Company Number: ES-GLENMARK PHARMACEUTICALS-2023GMK086465

PATIENT
  Age: 69 Year
  Sex: Female

DRUGS (6)
  1. LENALIDOMIDE [Suspect]
     Active Substance: LENALIDOMIDE
     Indication: Plasma cell myeloma
  2. LENALIDOMIDE [Suspect]
     Active Substance: LENALIDOMIDE
     Dosage: 10 MILLIGRAM, QD (MAINTENANCE)
     Route: 048
  3. BORTEZOMIB [Concomitant]
     Active Substance: BORTEZOMIB
     Indication: Plasma cell myeloma
     Dosage: UNK (FIRST LINE THERAPY CONSISTED OF 4 CYCLES)
  4. BORTEZOMIB [Concomitant]
     Active Substance: BORTEZOMIB
     Dosage: UNK (2 CONSOLIDATION CYCLES)
  5. DEXAMETHASONE [Concomitant]
     Active Substance: DEXAMETHASONE
     Indication: Plasma cell myeloma
     Dosage: UNK (FIRST LINE THERAPY CONSISTED OF 4 CYCLES)
  6. DEXAMETHASONE [Concomitant]
     Active Substance: DEXAMETHASONE
     Dosage: UNK (2 CONSOLIDATION CYCLES)

REACTIONS (1)
  - B-cell type acute leukaemia [Unknown]
